FAERS Safety Report 18256984 (Version 1)
Quarter: 2020Q3

REPORT INFORMATION
  Report Type: Spontaneous
  Country: IT (occurrence: IT)
  Receive Date: 20200911
  Receipt Date: 20200911
  Transmission Date: 20201103
  Serious: Yes (Hospitalization)
  Sender: FDA-Public Use
  Company Number: NVSC2020IT243789

PATIENT
  Age: 29 Year
  Sex: Female

DRUGS (5)
  1. TRILAFON [Suspect]
     Active Substance: PERPHENAZINE
     Indication: DRUG ABUSE
     Dosage: 15 DF, UNKNOWN
     Route: 048
     Dates: start: 20180220, end: 20180220
  2. CARBOLITHIUM [Concomitant]
     Active Substance: LITHIUM CARBONATE
     Indication: NARCISSISTIC PERSONALITY DISORDER
     Dosage: 1 DF, QD
     Route: 048
  3. QUETIAPINE. [Suspect]
     Active Substance: QUETIAPINE
     Indication: DRUG ABUSE
     Dosage: 200 MG, UNKNOWN
     Route: 048
     Dates: start: 20180220, end: 20180220
  4. FELISON [Suspect]
     Active Substance: FLURAZEPAM MONOHYDROCHLORIDE
     Indication: DRUG ABUSE
     Dosage: 3 DF, UNKNOWN
     Route: 048
     Dates: start: 20180220, end: 20180220
  5. LORAZEPAM LEDERLE [Suspect]
     Active Substance: LORAZEPAM
     Indication: DRUG ABUSE
     Dosage: 4 DF, UNKNOWN
     Route: 048
     Dates: start: 20180220, end: 20180220

REACTIONS (3)
  - Bradykinesia [Recovering/Resolving]
  - Sopor [Recovering/Resolving]
  - Drug abuse [Recovering/Resolving]

NARRATIVE: CASE EVENT DATE: 20180220
